FAERS Safety Report 8096700-5 (Version None)
Quarter: 2012Q1

REPORT INFORMATION
  Report Type: 
  Country: None (occurrence: None)
  Receive Date: 20120129
  Receipt Date: 20111115
  Transmission Date: 20120608
  Serious: No
  Sender: FDA-Public Use
  Company Number: US-ABBOTT-11P-163-0874660-00

PATIENT
  Age: 64 Year
  Sex: Female
  Weight: 78.088 kg

DRUGS (7)
  1. LAMICTAL [Concomitant]
     Indication: PRODUCT USED FOR UNKNOWN INDICATION
  2. TRAZODONE HCL [Concomitant]
     Indication: INSOMNIA
  3. CALCIUM [Concomitant]
     Indication: SUPPLEMENTATION THERAPY
  4. PRILOSEC [Concomitant]
     Indication: ILL-DEFINED DISORDER
  5. EFFEXOR [Concomitant]
     Indication: DEPRESSION
  6. MELOXICAM [Concomitant]
     Indication: RHEUMATOID ARTHRITIS
  7. HUMIRA [Suspect]
     Indication: RHEUMATOID ARTHRITIS
     Dates: start: 20110801

REACTIONS (1)
  - INJECTION SITE PAIN [None]
